FAERS Safety Report 12922031 (Version 1)
Quarter: 2016Q4

REPORT INFORMATION
  Report Type: Spontaneous
  Country: US (occurrence: US)
  Receive Date: 20161108
  Receipt Date: 20161108
  Transmission Date: 20170207
  Serious: No
  Sender: FDA-Public Use
  Company Number: US-BAYER-2016-209730

PATIENT
  Age: 62 Year
  Sex: Female

DRUGS (1)
  1. ULTRAVIST [Suspect]
     Active Substance: IOPROMIDE
     Indication: ABDOMINAL PAIN
     Dosage: 1 DF, ONCE
     Route: 042
     Dates: start: 20161018, end: 20161018

REACTIONS (2)
  - Ear discomfort [None]
  - Ear pruritus [None]

NARRATIVE: CASE EVENT DATE: 20161018
